FAERS Safety Report 5557355-4 (Version None)
Quarter: 2007Q4

REPORT INFORMATION
  Report Type: 
  Country: None (occurrence: None)
  Receive Date: 20071214
  Receipt Date: 20071114
  Transmission Date: 20080405
  Serious: Yes (Hospitalization)
  Sender: FDA-Public Use
  Company Number: US-ROCHE-534786

PATIENT
  Age: 44 Year
  Sex: Male

DRUGS (13)
  1. FUZEON [Suspect]
     Indication: DRUG USE FOR UNKNOWN INDICATION
     Dosage: PATIENT IS IN HIS 3RD MONTH OF THERAPY
     Route: 065
     Dates: start: 20070901
  2. OMEPRAZOLE [Concomitant]
     Dosage: DRUG REPORTED AS OMEPAZOLE
  3. SULFATRIM [Concomitant]
     Dosage: DRUG REPORTED AS SULFATRIN
  4. DILANTIN [Concomitant]
  5. FLONASE [Concomitant]
  6. KALETRA [Concomitant]
  7. CLARITIN [Concomitant]
     Dosage: DRUG REPORTED AS CLARITIN D
  8. FLOMAX [Concomitant]
  9. HYDROXYCHLOROQUINE SULFATE [Concomitant]
     Dosage: DRUG REPORTED AS HYDROXYCHLOR
  10. FLUCONAZOLE [Concomitant]
  11. VALCYTE [Concomitant]
  12. AZT [Concomitant]
  13. SUSTIVA [Concomitant]

REACTIONS (2)
  - DEVICE LEAKAGE [None]
  - OSTEOMYELITIS [None]
